FAERS Safety Report 4797763-2 (Version None)
Quarter: 2005Q4

REPORT INFORMATION
  Report Type: 
  Country: None (occurrence: None)
  Receive Date: 20051013
  Receipt Date: 20051003
  Transmission Date: 20060501
  Serious: Yes (Death)
  Sender: FDA-Public Use
  Company Number: US-MERCK-0510USA02502

PATIENT
  Age: 64 Year
  Sex: Female
  Weight: 55 kg

DRUGS (9)
  1. VIOXX [Suspect]
     Indication: ARTHRITIS
     Route: 048
     Dates: start: 20031006, end: 20040513
  2. PAXIL [Concomitant]
     Route: 065
  3. VERAPAMIL [Concomitant]
     Route: 065
  4. SYNTHROID [Concomitant]
     Route: 065
  5. NEXIUM [Concomitant]
     Route: 065
  6. COUMADIN [Concomitant]
     Route: 065
  7. LANTUS [Concomitant]
     Route: 065
  8. ENBREL [Concomitant]
     Route: 065
  9. HUMALOG [Concomitant]
     Route: 065

REACTIONS (1)
  - ACUTE MYOCARDIAL INFARCTION [None]
